FAERS Safety Report 6294336-X (Version None)
Quarter: 2009Q3

REPORT INFORMATION
  Report Type: 
  Country: None (occurrence: None)
  Receive Date: 20090803
  Receipt Date: 20090721
  Transmission Date: 20100115
  Serious: Yes (Other)
  Sender: FDA-Public Use
  Company Number: GB-PFIZER INC-2009243122

PATIENT
  Age: 46 Year

DRUGS (4)
  1. CHAMPIX [Suspect]
     Indication: SMOKING CESSATION THERAPY
     Dosage: 0.5 MG, UNK
     Route: 048
     Dates: start: 20090423, end: 20090428
  2. AMOXICILLIN [Concomitant]
     Indication: LOWER RESPIRATORY TRACT INFECTION
     Dosage: 250 MG, 3X/DAY
     Route: 048
     Dates: start: 20090316, end: 20090323
  3. CLENIL [Concomitant]
     Dosage: 100 UG, 2X/DAY
     Route: 055
     Dates: start: 20090316
  4. HYDROXYZINE [Concomitant]
     Indication: URTICARIA
     Dosage: 180 MG, UNK
     Route: 048
     Dates: start: 20090409

REACTIONS (8)
  - ASTHENIA [None]
  - HEADACHE [None]
  - HYPOAESTHESIA [None]
  - MALAISE [None]
  - MUSCLE SPASMS [None]
  - PARAESTHESIA [None]
  - PHOTOPHOBIA [None]
  - VISION BLURRED [None]
